FAERS Safety Report 4286849-7 (Version None)
Quarter: 2004Q1

REPORT INFORMATION
  Report Type: 
  Country: None (occurrence: None)
  Receive Date: 20040206
  Receipt Date: 20040127
  Transmission Date: 20041129
  Serious: Yes (Other)
  Sender: FDA-Public Use
  Company Number: PHFR2004IE00800

PATIENT
  Age: 55 Year
  Sex: Male

DRUGS (2)
  1. CLOZARIL [Suspect]
     Indication: SCHIZOPHRENIA
     Dosage: 550MG/DAY
     Route: 048
     Dates: start: 19930715
  2. PHENYTOIN [Interacting]
     Route: 065

REACTIONS (2)
  - CONVULSION [None]
  - DRUG LEVEL DECREASED [None]
